FAERS Safety Report 10079808 (Version 1)
Quarter: 2014Q2

REPORT INFORMATION
  Report Type: Spontaneous
  Country: US (occurrence: US)
  Receive Date: 20140415
  Receipt Date: 20140415
  Transmission Date: 20141212
  Serious: Yes (Other)
  Sender: FDA-Public Use
  Company Number: US-TEVA-475608USA

PATIENT
  Age: 45 Year
  Sex: Male
  Weight: 83.99 kg

DRUGS (4)
  1. COPAXONE 40 MG [Suspect]
     Dates: start: 201402
  2. MORNIFLUMATE [Concomitant]
     Indication: BLADDER DISORDER
  3. DULOXETINE HYDROCHLORIDE [Concomitant]
     Indication: DEPRESSION
  4. ZOLPIDEM TARTRATE [Concomitant]
     Indication: INSOMNIA

REACTIONS (5)
  - Extraocular muscle paresis [Not Recovered/Not Resolved]
  - Influenza like illness [Not Recovered/Not Resolved]
  - Musculoskeletal stiffness [Not Recovered/Not Resolved]
  - Pain [Not Recovered/Not Resolved]
  - Headache [Not Recovered/Not Resolved]
